FAERS Safety Report 8923869 (Version 2)
Quarter: 2013Q2

REPORT INFORMATION
  Report Type: Spontaneous
  Country: US (occurrence: US)
  Receive Date: 20121126
  Receipt Date: 20130409
  Transmission Date: 20140414
  Serious: No
  Sender: FDA-Public Use
  Company Number: US-ASTRAZENECA-2012SE79449

PATIENT
  Age: 67 Year
  Sex: Female

DRUGS (1)
  1. NEXIUM [Suspect]
     Indication: GASTROOESOPHAGEAL REFLUX DISEASE
     Route: 048
     Dates: start: 2008

REACTIONS (5)
  - Acquired oesophageal web [Unknown]
  - Regurgitation [Unknown]
  - Vomiting [Unknown]
  - Diarrhoea [Unknown]
  - Malaise [Unknown]
